FAERS Safety Report 9558873 (Version 3)
Quarter: 2014Q2

REPORT INFORMATION
  Report Type: Spontaneous
  Country: US (occurrence: US)
  Receive Date: 20130927
  Receipt Date: 20140528
  Transmission Date: 20141212
  Serious: Yes (Other)
  Sender: FDA-Public Use
  Company Number: US-AMGEN-USASP2013066941

PATIENT
  Age: 72 Year
  Sex: Female
  Weight: 58.5 kg

DRUGS (8)
  1. PROLIA [Suspect]
     Indication: OSTEOPOROSIS
     Dosage: 60 MG, ONE TIME DOSE
     Route: 058
     Dates: start: 20120925
  2. PROLIA [Suspect]
     Dosage: UNK
     Route: 058
     Dates: start: 20130326
  3. XANAX [Concomitant]
     Dosage: 0.5 MG, QD
     Route: 048
  4. NORVASC [Concomitant]
     Dosage: 5 MG, QD
     Route: 048
  5. ASPIRIN [Concomitant]
     Dosage: 81 MG, QD
     Route: 048
  6. LIPITOR [Concomitant]
     Dosage: 20 MG, QD
     Route: 048
  7. CALCIUM + VITAMIN D3 [Concomitant]
  8. FISH OIL [Concomitant]

REACTIONS (5)
  - Osteonecrosis of jaw [Unknown]
  - Toothache [Not Recovered/Not Resolved]
  - Arthralgia [Unknown]
  - Neck pain [Unknown]
  - Scar [Unknown]
